FAERS Safety Report 8244096-8 (Version None)
Quarter: 2012Q1

REPORT INFORMATION
  Report Type: 
  Country: None (occurrence: None)
  Receive Date: 20120309
  Receipt Date: 20100616
  Transmission Date: 20120608
  Serious: Yes (Other)
  Sender: FDA-Public Use
  Company Number: PHHY2010US16547

PATIENT
  Age: 49 Year
  Sex: Female

DRUGS (14)
  1. XANAX [Concomitant]
  2. NEURONTIN [Concomitant]
  3. EXTAVIA [Suspect]
     Indication: MULTIPLE SCLEROSIS
     Dosage: SUBCUTANEOUS ; 0.0625 MG QOD, SUBCUTANEOUS ; 1/4TH OF THE DOSE, SUBCUTANEOUS
     Route: 058
     Dates: start: 20100309
  4. LASIX [Concomitant]
  5. INSULIN (INSULIN) [Concomitant]
  6. SIMVASTATIN [Concomitant]
  7. PREVACID [Concomitant]
  8. VICODIN [Concomitant]
  9. TEGRETOL [Concomitant]
  10. SOMA [Concomitant]
  11. ALBUTEROL [Concomitant]
  12. BACLOFEN [Concomitant]
  13. DIGOXIN [Concomitant]
  14. LISINOPRIL [Concomitant]

REACTIONS (8)
  - DEPRESSED MOOD [None]
  - PAIN IN EXTREMITY [None]
  - HEADACHE [None]
  - BURNING SENSATION [None]
  - FEELING ABNORMAL [None]
  - FEELING HOT [None]
  - CRYING [None]
  - ASTHENIA [None]
